FAERS Safety Report 4809358-2 (Version None)
Quarter: 2005Q4

REPORT INFORMATION
  Report Type: 
  Country: None (occurrence: None)
  Receive Date: 20051020
  Receipt Date: 20051006
  Transmission Date: 20060501
  Serious: Yes (Other)
  Sender: FDA-Public Use
  Company Number: 603312

PATIENT
  Age: 14 Year
  Sex: Male

DRUGS (2)
  1. HEMOFIL [Suspect]
     Indication: HAEMOPHILIA
  2. PROPLEX T [Suspect]
     Indication: HAEMOPHILIA

REACTIONS (5)
  - ADVERSE EVENT [None]
  - HEPATITIS B [None]
  - HEPATITIS C [None]
  - PHARMACEUTICAL PRODUCT COMPLAINT [None]
  - POOR QUALITY DRUG ADMINISTERED [None]
